FAERS Safety Report 17302924 (Version 1)
Quarter: 2020Q1

REPORT INFORMATION
  Report Type: Spontaneous
  Country: US (occurrence: US)
  Receive Date: 20200122
  Receipt Date: 20200122
  Transmission Date: 20200409
  Serious: Yes (Other)
  Sender: FDA-Public Use
  Company Number: US-EPIHEALTH-2020-US-001268

PATIENT
  Sex: 0

DRUGS (1)
  1. ACYCLOVIR (NON-SPECIFIC) [Suspect]
     Active Substance: ACYCLOVIR
     Indication: PRODUCT USED FOR UNKNOWN INDICATION

REACTIONS (1)
  - Immune thrombocytopenic purpura [Unknown]
